FAERS Safety Report 15237970 (Version 3)
Quarter: 2019Q2

REPORT INFORMATION
  Report Type: Spontaneous
  Country: US (occurrence: US)
  Receive Date: 20180803
  Receipt Date: 20190610
  Transmission Date: 20190711
  Serious: Yes (Other)
  Sender: FDA-Public Use
  Company Number: US-BAYER-2018-141858

PATIENT
  Age: 27 Year
  Sex: Female
  Weight: 53.52 kg

DRUGS (1)
  1. SKYLA [Suspect]
     Active Substance: LEVONORGESTREL
     Indication: CONTRACEPTION
     Dosage: 14 MCG/24HR, CONT
     Route: 015
     Dates: start: 20170405, end: 20180706

REACTIONS (5)
  - Bacterial vaginosis [None]
  - Ectopic pregnancy with contraceptive device [Recovered/Resolved]
  - Cervicitis human papilloma virus [None]
  - Cervical dysplasia [Recovered/Resolved]
  - Drug ineffective [None]

NARRATIVE: CASE EVENT DATE: 20180403
